FAERS Safety Report 11202446 (Version 1)
Quarter: 2015Q2

REPORT INFORMATION
  Report Type: Report from Study
  Country: FR (occurrence: FR)
  Receive Date: 20150619
  Receipt Date: 20150619
  Transmission Date: 20150821
  Serious: Yes (Other)
  Sender: FDA-Public Use
  Company Number: FR-PFIZER INC-2015148496

PATIENT
  Age: 65 Year
  Sex: Female
  Weight: 55 kg

DRUGS (19)
  1. MYLOTARG [Suspect]
     Active Substance: GEMTUZUMAB OZOGAMICIN
     Indication: ACUTE MYELOID LEUKAEMIA
     Dosage: 3 MG/M2, DAILY (ON DAYS 1-4-7)
     Route: 042
     Dates: start: 20090112, end: 20090118
  2. BUSILVEX [Suspect]
     Active Substance: BUSULFAN
     Dosage: 42 MG, 4X/DAY
     Route: 042
     Dates: start: 20100211, end: 20100212
  3. CYTARABINE. [Suspect]
     Active Substance: CYTARABINE
     Dosage: 2000 MG/M2, DAILY
     Route: 042
     Dates: start: 20090307, end: 20090309
  4. DAUNORUBICIN HYDROCHLORIDE. [Suspect]
     Active Substance: DAUNORUBICIN HYDROCHLORIDE
     Indication: ACUTE MYELOID LEUKAEMIA
     Dosage: 30 MG/M2, DAILY, D1-D3
     Route: 042
     Dates: start: 20090112, end: 20090114
  5. HEPARIN [Concomitant]
     Active Substance: HEPARIN SODIUM
     Indication: VENOOCCLUSIVE DISEASE
     Dosage: 100 IU, DAILY
     Dates: start: 20100210
  6. CYTARABINE. [Suspect]
     Active Substance: CYTARABINE
     Indication: ACUTE MYELOID LEUKAEMIA
     Dosage: 200 MG/M2, DAILY, D1-D7
     Route: 042
     Dates: start: 20090112, end: 20090118
  7. ARACYTINE [Suspect]
     Active Substance: CYTARABINE
     Dosage: UNK
     Dates: start: 20091204
  8. MYLOTARG [Suspect]
     Active Substance: GEMTUZUMAB OZOGAMICIN
     Dosage: 3 MG/M2, DAILY
     Route: 042
     Dates: start: 20090306, end: 20090306
  9. THYMOGLOBULIN [Concomitant]
     Active Substance: LAPINE T-LYMPHOCYTE IMMUNE GLOBULIN
     Dosage: 130 MG, DAILY
     Route: 042
     Dates: start: 20100213, end: 20100214
  10. DAUNORUBICIN HYDROCHLORIDE. [Suspect]
     Active Substance: DAUNORUBICIN HYDROCHLORIDE
     Dosage: 60 MG/M2, DAILY
     Route: 042
     Dates: start: 20090306, end: 20090306
  11. IDARUBICIN HCL [Suspect]
     Active Substance: IDARUBICIN HYDROCHLORIDE
     Dosage: UNK
     Dates: start: 20091204
  12. REVLIMID [Suspect]
     Active Substance: LENALIDOMIDE
     Dosage: UNK
     Dates: start: 20091204
  13. CYTARABINE. [Suspect]
     Active Substance: CYTARABINE
     Dosage: 1000 MG/M2, DAILY
     Route: 042
     Dates: start: 20090310, end: 20090310
  14. CYTARABINE. [Suspect]
     Active Substance: CYTARABINE
     Dosage: 3200 MG, DAILY FROM D1 TO D5
     Route: 042
     Dates: start: 20090417, end: 20090421
  15. CICLOSPORIN [Concomitant]
     Active Substance: CYCLOSPORINE
     Indication: GRAFT VERSUS HOST DISEASE
     Dosage: 3 MG/KG, DAILY
     Dates: start: 20100215
  16. DAUNORUBICIN HYDROCHLORIDE. [Suspect]
     Active Substance: DAUNORUBICIN HYDROCHLORIDE
     Dosage: 95 MG, DAILY
     Route: 042
     Dates: start: 20090417, end: 20090418
  17. MYLOTARG [Suspect]
     Active Substance: GEMTUZUMAB OZOGAMICIN
     Dosage: 5 MG, DAILY
     Route: 042
     Dates: start: 20090417, end: 20090417
  18. CYTARABINE. [Suspect]
     Active Substance: CYTARABINE
     Dosage: 1000 MG/M2, DAILY
     Route: 042
     Dates: start: 20090306, end: 20090306
  19. FLUDARABINE [Suspect]
     Active Substance: FLUDARABINE PHOSPHATE
     Dosage: 45 MG, DAILY
     Route: 042
     Dates: start: 20100210, end: 20100214

REACTIONS (1)
  - Venoocclusive liver disease [Not Recovered/Not Resolved]

NARRATIVE: CASE EVENT DATE: 20100218
